FAERS Safety Report 22276678 (Version 1)
Quarter: 2023Q2

REPORT INFORMATION
  Report Type: Spontaneous
  Country: US (occurrence: US)
  Receive Date: 20230503
  Receipt Date: 20230503
  Transmission Date: 20230721
  Serious: Yes (Hospitalization, Other)
  Sender: FDA-Public Use
  Company Number: US-TEVA-2023-US-2882569

PATIENT
  Age: 68 Year
  Sex: Female

DRUGS (3)
  1. IDARUBICIN [Suspect]
     Active Substance: IDARUBICIN
     Indication: Acute myeloid leukaemia
     Dosage: 20 MILLIGRAM DAILY; REINDUCTION CHEMOTHERAPY, ONCE A DAY
     Route: 042
  2. CYTARABINE [Suspect]
     Active Substance: CYTARABINE
     Indication: Acute myeloid leukaemia
     Dosage: 170 MILLIGRAM DAILY; REINDUCTION CHEMOTHERAPY, ONCE A DAY
     Route: 042
  3. CYTARABINE [Suspect]
     Active Substance: CYTARABINE
     Dosage: ON DAY 28 OF CHEMOTHERAPY, 50 MG
     Route: 037

REACTIONS (1)
  - Febrile neutropenia [Unknown]
